FAERS Safety Report 6908926-1 (Version None)
Quarter: 2010Q3

REPORT INFORMATION
  Report Type: 
  Country: None (occurrence: None)
  Receive Date: 20100805
  Receipt Date: 20100712
  Transmission Date: 20110219
  Serious: Yes (Other)
  Sender: FDA-Public Use
  Company Number: JP-PFIZER INC-2010084952

PATIENT
  Age: 3 Year
  Sex: Male

DRUGS (3)
  1. ZITHROMAC [Suspect]
     Dosage: 150 MG, 1X/DAY
     Route: 048
     Dates: start: 20100707, end: 20100709
  2. MUCODYNE [Suspect]
     Route: 048
  3. MEPTIN [Suspect]
     Dosage: UNK
     Route: 048

REACTIONS (1)
  - FAECES DISCOLOURED [None]
